FAERS Safety Report 21636153 (Version 2)
Quarter: 2022Q4

REPORT INFORMATION
  Report Type: Report from Study
  Country: ZA (occurrence: ZA)
  Receive Date: 20221123
  Receipt Date: 20221128
  Transmission Date: 20230112
  Serious: Yes (Hospitalization)
  Sender: FDA-Public Use
  Company Number: ZA-002147023-NVSC2022ZA244819

PATIENT
  Age: 32 Year
  Sex: Female

DRUGS (1)
  1. FINGOLIMOD HYDROCHLORIDE [Suspect]
     Active Substance: FINGOLIMOD HYDROCHLORIDE
     Indication: Relapsing-remitting multiple sclerosis
     Dosage: 0.5 MG, QD
     Route: 048
     Dates: start: 20221020

REACTIONS (12)
  - Gait disturbance [Recovering/Resolving]
  - Hypoaesthesia [Recovering/Resolving]
  - Paraesthesia [Recovering/Resolving]
  - Stress [Unknown]
  - Intracranial pressure increased [Unknown]
  - Dizziness [Unknown]
  - Balance disorder [Unknown]
  - Dysgraphia [Recovering/Resolving]
  - Asthenia [Unknown]
  - Blood pressure fluctuation [Unknown]
  - Visual field defect [Unknown]
  - Fatigue [Unknown]

NARRATIVE: CASE EVENT DATE: 20221031
